FAERS Safety Report 7966281-2 (Version None)
Quarter: 2011Q4

REPORT INFORMATION
  Report Type: 
  Country: None (occurrence: None)
  Receive Date: 20111208
  Receipt Date: 20111130
  Transmission Date: 20120403
  Serious: No
  Sender: FDA-Public Use
  Company Number: NL-ABBOTT-11P-114-0860085-00

PATIENT
  Sex: Female
  Weight: 80.5 kg

DRUGS (5)
  1. LEUPRORELINE (LUCRIN) 11.25 MG [Suspect]
     Indication: BREAST CANCER FEMALE
     Route: 058
     Dates: start: 20110705
  2. AMLODIPINE [Concomitant]
     Indication: HYPERTENSION
     Route: 048
     Dates: start: 19960101
  3. APD [Concomitant]
     Indication: OSTEOPOROSIS PROPHYLAXIS
     Route: 042
  4. ANASTROZOLE [Concomitant]
     Indication: BREAST CANCER FEMALE
     Route: 048
     Dates: start: 20110526
  5. METOPROLOL SUCCINATE [Concomitant]
     Indication: HYPERTENSION
     Dosage: 1 50MG SR TABLET DAILY
     Route: 048
     Dates: start: 19960101

REACTIONS (3)
  - MOOD SWINGS [None]
  - HOT FLUSH [None]
  - BINGE EATING [None]
